FAERS Safety Report 13033746 (Version 1)
Quarter: 2016Q4

REPORT INFORMATION
  Report Type: Spontaneous
  Country: GB (occurrence: GB)
  Receive Date: 20161216
  Receipt Date: 20161216
  Transmission Date: 20170207
  Serious: Yes (Disabling)
  Sender: FDA-Public Use
  Company Number: GB-TEVA-719532ACC

PATIENT
  Age: 41 Year

DRUGS (1)
  1. GLATIRAMER ACETATE. [Suspect]
     Active Substance: GLATIRAMER ACETATE
     Route: 058
     Dates: start: 20151007, end: 20160921

REACTIONS (7)
  - Injection site plaque [Not Recovered/Not Resolved]
  - Rash generalised [Recovering/Resolving]
  - Skin exfoliation [Unknown]
  - Injection site erythema [Unknown]
  - Injection site pruritus [Unknown]
  - Purpura [Unknown]
  - Injection site mass [Unknown]

NARRATIVE: CASE EVENT DATE: 20160918
